FAERS Safety Report 7097603-5 (Version None)
Quarter: 2010Q4

REPORT INFORMATION
  Report Type: 
  Country: None (occurrence: None)
  Receive Date: 20101112
  Receipt Date: 20101104
  Transmission Date: 20110411
  Serious: Yes (Hospitalization)
  Sender: FDA-Public Use
  Company Number: US-BIOGENIDEC-2010BI004313

PATIENT
  Age: 49 Year
  Sex: Female

DRUGS (4)
  1. TYSABRI [Suspect]
     Indication: MULTIPLE SCLEROSIS
     Route: 042
     Dates: start: 20091104, end: 20091202
  2. ADDERALL 10 [Concomitant]
     Indication: ATTENTION DEFICIT/HYPERACTIVITY DISORDER
  3. XANAX [Concomitant]
  4. PERCOCET [Concomitant]

REACTIONS (6)
  - INCONTINENCE [None]
  - PARALYSIS [None]
  - SCIATICA [None]
  - URINARY INCONTINENCE [None]
  - URINARY TRACT INFECTION [None]
  - UROSEPSIS [None]
